FAERS Safety Report 7495874-4 (Version None)
Quarter: 2011Q2

REPORT INFORMATION
  Report Type: 
  Country: None (occurrence: None)
  Receive Date: 20110523
  Receipt Date: 20110511
  Transmission Date: 20111010
  Serious: Yes (Other)
  Sender: FDA-Public Use
  Company Number: US-AMGEN-USASP2011024626

PATIENT
  Age: 31 Year
  Sex: Female

DRUGS (2)
  1. EPOGEN [Suspect]
     Dosage: 7600 IU, QWK
  2. EPOGEN [Suspect]
     Indication: RENAL FAILURE CHRONIC
     Dosage: 3200 IU, QWK

REACTIONS (5)
  - HAEMOGLOBIN DECREASED [None]
  - HYPERSENSITIVITY [None]
  - DYSPNOEA [None]
  - PRURITUS [None]
  - RASH [None]
